FAERS Safety Report 8481543-0 (Version None)
Quarter: 2012Q3

REPORT INFORMATION
  Report Type: 
  Country: None (occurrence: None)
  Receive Date: 20120702
  Receipt Date: 20120620
  Transmission Date: 20120928
  Serious: Yes (Other)
  Sender: FDA-Public Use
  Company Number: JP-VERTEX PHARMACEUTICALS INC.-AE-2012-006317

PATIENT
  Age: 73 Year
  Sex: Male

DRUGS (14)
  1. RIBAVIRIN [Concomitant]
     Route: 048
     Dates: start: 20120316, end: 20120329
  2. BEZATOL SR [Concomitant]
     Route: 048
  3. REZALTAS [Concomitant]
     Route: 048
  4. BUP-4 [Concomitant]
     Route: 048
  5. URSO 250 [Concomitant]
     Route: 048
  6. PEGINTERFERON ALFA-2B [Concomitant]
     Route: 058
     Dates: start: 20120330
  7. GLYCYRON [Concomitant]
     Route: 048
  8. TELAVIC (TELAPREVIR) [Suspect]
     Route: 048
     Dates: start: 20120330, end: 20120518
  9. PEGINTERFERON ALFA-2B [Concomitant]
     Route: 058
     Dates: start: 20120302, end: 20120329
  10. RIBAVIRIN [Concomitant]
     Route: 048
     Dates: start: 20120302, end: 20120315
  11. LEVOTHYROXINE SODIUM [Concomitant]
     Route: 048
  12. POTASSIUM CHLORIDE [Concomitant]
     Dates: start: 20120316
  13. TELAVIC (TELAPREVIR) [Suspect]
     Indication: HEPATITIS C
     Route: 048
     Dates: start: 20120301, end: 20120329
  14. FLIVASTATIN SODIUM [Concomitant]
     Route: 048

REACTIONS (1)
  - RENAL IMPAIRMENT [None]
